FAERS Safety Report 7027331-3 (Version None)
Quarter: 2010Q4

REPORT INFORMATION
  Report Type: 
  Country: None (occurrence: None)
  Receive Date: 20101004
  Receipt Date: 20100921
  Transmission Date: 20110411
  Serious: Yes (Other)
  Sender: FDA-Public Use
  Company Number: PHHY2010CA62700

PATIENT
  Sex: Female

DRUGS (1)
  1. ZOMETA [Suspect]
     Indication: BREAST CANCER
     Dosage: 4 MG EVERY SIX MONTHS
     Route: 042
     Dates: start: 20100322

REACTIONS (3)
  - MALAISE [None]
  - PNEUMONIA [None]
  - PYREXIA [None]
